FAERS Safety Report 5878762-6 (Version None)
Quarter: 2008Q3

REPORT INFORMATION
  Report Type: 
  Country: None (occurrence: None)
  Receive Date: 20080910
  Receipt Date: 20080910
  Transmission Date: 20090109
  Serious: Yes (Other)
  Sender: FDA-Public Use
  Company Number: None

PATIENT
  Sex: Female

DRUGS (1)
  1. RITUXAN [Suspect]
     Dates: start: 20080807, end: 20080807

REACTIONS (4)
  - CHEST DISCOMFORT [None]
  - FEELING ABNORMAL [None]
  - HEART RATE INCREASED [None]
  - OXYGEN SATURATION DECREASED [None]
